FAERS Safety Report 11612237 (Version 1)
Quarter: 2015Q4

REPORT INFORMATION
  Report Type: Report from Study
  Country: US (occurrence: US)
  Receive Date: 20151008
  Receipt Date: 20151008
  Transmission Date: 20160304
  Serious: Yes (Other)
  Sender: FDA-Public Use
  Company Number: PHEH2015US019465

PATIENT
  Age: 51 Year
  Sex: Male
  Weight: 111.11 kg

DRUGS (10)
  1. GILENYA [Suspect]
     Active Substance: FINGOLIMOD HYDROCHLORIDE
     Indication: MULTIPLE SCLEROSIS
     Dosage: 0.5 MG, QD
     Route: 048
     Dates: end: 201412
  2. MOTRIN [Concomitant]
     Active Substance: IBUPROFEN
     Indication: PRODUCT USED FOR UNKNOWN INDICATION
     Route: 065
  3. MULTI VITAMIN [Concomitant]
     Active Substance: VITAMINS
     Indication: PRODUCT USED FOR UNKNOWN INDICATION
     Route: 065
  4. VITAMIN D3 [Concomitant]
     Active Substance: CHOLECALCIFEROL
     Indication: PRODUCT USED FOR UNKNOWN INDICATION
     Route: 065
  5. VALIUM [Concomitant]
     Active Substance: DIAZEPAM
     Indication: PRODUCT USED FOR UNKNOWN INDICATION
     Route: 065
  6. ULTRAM [Concomitant]
     Active Substance: TRAMADOL HYDROCHLORIDE
     Indication: PRODUCT USED FOR UNKNOWN INDICATION
     Route: 065
  7. CYANOCOBALAMIN. [Concomitant]
     Active Substance: CYANOCOBALAMIN
     Indication: PRODUCT USED FOR UNKNOWN INDICATION
     Route: 065
  8. TYLENOL ARTHRITIS PAIN [Concomitant]
     Active Substance: ACETAMINOPHEN
     Indication: ARTHRALGIA
     Route: 065
  9. CENTRUM SILVER [Concomitant]
     Active Substance: MINERALS\VITAMINS
     Indication: PRODUCT USED FOR UNKNOWN INDICATION
     Route: 065
  10. MIRALAX [Concomitant]
     Active Substance: POLYETHYLENE GLYCOL 3350
     Indication: PRODUCT USED FOR UNKNOWN INDICATION
     Route: 065

REACTIONS (34)
  - Intestinal obstruction [Unknown]
  - Urinary incontinence [Unknown]
  - Pain [Unknown]
  - Gravitational oedema [Unknown]
  - Deep vein thrombosis [Unknown]
  - Speech disorder [Unknown]
  - Balance disorder [Not Recovered/Not Resolved]
  - Left ventricular hypertrophy [Unknown]
  - Asthenia [Not Recovered/Not Resolved]
  - Dizziness [Unknown]
  - Muscle spasticity [Unknown]
  - Hypoalbuminaemia [Unknown]
  - Klebsiella infection [Unknown]
  - Hypokinesia [Unknown]
  - Hyperthyroidism [Unknown]
  - Hyponatraemia [Unknown]
  - Hypokalaemia [Unknown]
  - Glucose tolerance impaired [Unknown]
  - Tachycardia [Unknown]
  - Abdominal adhesions [Unknown]
  - Diarrhoea [Unknown]
  - Faecal incontinence [Unknown]
  - Oedema peripheral [Not Recovered/Not Resolved]
  - Hemiplegia [Unknown]
  - Atelectasis [Unknown]
  - Snoring [Unknown]
  - Nausea [Unknown]
  - Urinary tract infection [Unknown]
  - Cellulitis [Unknown]
  - Joint stiffness [Unknown]
  - Dysarthria [Unknown]
  - Memory impairment [Unknown]
  - Hypomagnesaemia [Unknown]
  - Hyperthyroidism [Unknown]

NARRATIVE: CASE EVENT DATE: 20140826
